FAERS Safety Report 15201751 (Version 1)
Quarter: 2018Q3

REPORT INFORMATION
  Report Type: Spontaneous
  Country: FR (occurrence: FR)
  Receive Date: 20180726
  Receipt Date: 20180726
  Transmission Date: 20181010
  Serious: Yes (Death)
  Sender: FDA-Public Use
  Company Number: FR-ASTRAZENECA-2018SE92815

PATIENT
  Age: 80 Year
  Sex: Male
  Weight: 87 kg

DRUGS (8)
  1. INEXIUM [Concomitant]
     Active Substance: ESOMEPRAZOLE
     Route: 048
     Dates: end: 20180707
  2. SMECTA [Concomitant]
     Active Substance: MONTMORILLONITE
     Route: 048
     Dates: end: 20180707
  3. TENORMINE [Concomitant]
     Active Substance: ATENOLOL
     Route: 048
     Dates: end: 20180707
  4. KARDEGIC [Concomitant]
     Active Substance: ASPIRIN DL-LYSINE
     Route: 048
     Dates: end: 20180707
  5. TAGRISSO [Suspect]
     Active Substance: OSIMERTINIB
     Indication: NON-SMALL CELL LUNG CANCER STAGE IV
     Route: 048
     Dates: start: 20180215, end: 20180705
  6. CALCIDOSE VITAMINE D [Concomitant]
     Active Substance: CALCIUM\CHOLECALCIFEROL
     Route: 048
  7. LASILIX [Concomitant]
     Active Substance: FUROSEMIDE
     Route: 048
     Dates: end: 20180707
  8. DAFALGAN [Concomitant]
     Active Substance: ACETAMINOPHEN
     Route: 048

REACTIONS (2)
  - Acute kidney injury [Fatal]
  - Diarrhoea [Fatal]

NARRATIVE: CASE EVENT DATE: 20180605
